FAERS Safety Report 4558623-5 (Version None)
Quarter: 2005Q1

REPORT INFORMATION
  Report Type: 
  Country: None (occurrence: None)
  Receive Date: 20050119
  Receipt Date: 20050107
  Transmission Date: 20050727
  Serious: Yes (Other)
  Sender: FDA-Public Use
  Company Number: 2004085287

PATIENT
  Sex: Female

DRUGS (1)
  1. NEURONTIN [Suspect]
     Indication: ILL-DEFINED DISORDER
     Dosage: 600 MG (300 MG, 2 IN 1 CYCLICAL), ORAL
     Route: 048

REACTIONS (7)
  - CARDIAC DISORDER [None]
  - DEPRESSION [None]
  - MUSCLE SPASMS [None]
  - NERVOUSNESS [None]
  - OEDEMA PERIPHERAL [None]
  - POOR PERIPHERAL CIRCULATION [None]
  - SUICIDAL IDEATION [None]
